FAERS Safety Report 4768868-7 (Version None)
Quarter: 2005Q3

REPORT INFORMATION
  Report Type: 
  Country: None (occurrence: None)
  Receive Date: 20050914
  Receipt Date: 20050829
  Transmission Date: 20060218
  Serious: Yes (Hospitalization)
  Sender: FDA-Public Use
  Company Number: 2005BI014927

PATIENT
  Age: 61 Year
  Sex: Female

DRUGS (17)
  1. AVONEX [Suspect]
     Indication: MULTIPLE SCLEROSIS
     Dosage: 30 UG;QW; IM
     Route: 030
     Dates: start: 20020805
  2. AVONEX [Suspect]
     Indication: MULTIPLE SCLEROSIS
     Dosage: 30 UG;QW; IM
     Route: 030
  3. LITHIUM [Concomitant]
  4. BACLOFEN [Concomitant]
  5. LIPITOR [Concomitant]
  6. AMBIEN [Concomitant]
  7. FLUOXETNE [Concomitant]
  8. POTASSIUM [Concomitant]
  9. VERAPAMIL [Concomitant]
  10. QUINAGLUTE [Concomitant]
  11. DETROL [Concomitant]
  12. DETROL [Concomitant]
  13. RANITIDINE [Concomitant]
  14. COMBIVENT [Concomitant]
  15. CALCIUM GLUCONATE [Concomitant]
  16. M.V.I. [Concomitant]
  17. IBUPROFEN [Concomitant]

REACTIONS (2)
  - HALLUCINATION [None]
  - OVERDOSE [None]
